FAERS Safety Report 9911983 (Version 2)
Quarter: 2014Q1

REPORT INFORMATION
  Report Type: Spontaneous
  Country: US (occurrence: US)
  Receive Date: 20140219
  Receipt Date: 20140219
  Transmission Date: 20141002
  Serious: No
  Sender: FDA-Public Use
  Company Number: US-MYLANLABS-2013S1027307

PATIENT
  Age: 67 Year
  Sex: Male

DRUGS (1)
  1. EPIPEN [Suspect]

REACTIONS (4)
  - Accidental exposure to product [Recovered/Resolved]
  - Expired drug administered [Recovered/Resolved]
  - Injection site hypoaesthesia [Not Recovered/Not Resolved]
  - Injection site pain [Not Recovered/Not Resolved]
